FAERS Safety Report 9602818 (Version 3)
Quarter: 2014Q1

REPORT INFORMATION
  Report Type: Report from Study
  Country: US (occurrence: US)
  Receive Date: 20131007
  Receipt Date: 20140131
  Transmission Date: 20141002
  Serious: Yes (Other)
  Sender: FDA-Public Use
  Company Number: US-ABBVIE-13P-163-1152999-00

PATIENT
  Age: 27 Year
  Sex: Female

DRUGS (7)
  1. LUPRON DEPOT [Suspect]
     Indication: ENDOMETRIOSIS
     Dates: start: 200606, end: 200612
  2. LUPRON DEPOT [Suspect]
     Indication: ENDOMETRIOSIS
     Dates: start: 20130708
  3. XANAX [Concomitant]
     Indication: PRODUCT USED FOR UNKNOWN INDICATION
     Dosage: AT BEDTIME
     Route: 048
  4. MEDROL [Concomitant]
     Indication: HYPERSENSITIVITY
  5. EPINEPHRINE [Concomitant]
     Indication: ANAPHYLACTIC REACTION
  6. FLEXERIL [Concomitant]
     Indication: INSOMNIA
     Route: 048
  7. NORCO [Concomitant]
     Indication: PAIN
     Dosage: 10 MG/325 MG

REACTIONS (24)
  - Intervertebral disc disorder [Unknown]
  - Rotator cuff syndrome [Unknown]
  - Muscle rupture [Unknown]
  - Weight decreased [Recovered/Resolved]
  - Fatigue [Recovered/Resolved]
  - Nausea [Recovered/Resolved]
  - Road traffic accident [Unknown]
  - Muscle spasms [Unknown]
  - Pain in extremity [Unknown]
  - Weight increased [Recovered/Resolved]
  - Abdominal distension [Unknown]
  - Abdominal tenderness [Unknown]
  - Abdominal pain upper [Unknown]
  - Abdominal pain upper [Unknown]
  - Arthralgia [Unknown]
  - Endometriosis [Unknown]
  - Constipation [Not Recovered/Not Resolved]
  - Weight decreased [Unknown]
  - Hot flush [Not Recovered/Not Resolved]
  - Metrorrhagia [Not Recovered/Not Resolved]
  - Nausea [Not Recovered/Not Resolved]
  - Lethargy [Not Recovered/Not Resolved]
  - Fatigue [Not Recovered/Not Resolved]
  - Obsessive-compulsive disorder [Not Recovered/Not Resolved]
